FAERS Safety Report 10262137 (Version 1)
Quarter: 2014Q2

REPORT INFORMATION
  Report Type: Spontaneous
  Country: US (occurrence: US)
  Receive Date: 20140626
  Receipt Date: 20140626
  Transmission Date: 20141212
  Serious: Yes (Hospitalization)
  Sender: FDA-Public Use
  Company Number: US-BAYER-2014-092795

PATIENT
  Age: 71 Year
  Sex: Female

DRUGS (3)
  1. CIPROFLOXACIN [Suspect]
     Indication: URINARY TRACT INFECTION
  2. DIGOXIN [Suspect]
     Indication: ATRIAL FIBRILLATION
  3. METOPROLOL [Concomitant]
     Indication: HYPERTENSION

REACTIONS (9)
  - Clostridium difficile colitis [Recovered/Resolved]
  - Toxicity to various agents [Recovered/Resolved]
  - Mental status changes [Recovered/Resolved]
  - Visual impairment [Recovered/Resolved]
  - Nausea [Recovered/Resolved]
  - Vomiting [Recovered/Resolved]
  - Diarrhoea [Recovered/Resolved]
  - Dehydration [Recovered/Resolved]
  - Supraventricular extrasystoles [Recovered/Resolved]
